FAERS Safety Report 4591741-4 (Version None)
Quarter: 2005Q1

REPORT INFORMATION
  Report Type: 
  Country: None (occurrence: None)
  Receive Date: 20050218
  Receipt Date: 20050210
  Transmission Date: 20050727
  Serious: Yes (Hospitalization)
  Sender: FDA-Public Use
  Company Number: K200401981

PATIENT
  Age: 63 Year
  Sex: Female

DRUGS (5)
  1. ALTACE [Suspect]
     Indication: HYPERTENSION
     Dosage: 2.5 MG, QD, ORAL
     Route: 048
     Dates: start: 20040301, end: 20041001
  2. HYDROCHLOROTHIAZIDE [Suspect]
     Indication: HYPERTENSION
     Dosage: 12.5 MG, QD, ORAL
     Route: 048
     Dates: start: 20040301, end: 20041001
  3. HCT    CT-ARZNEIMITTEL (HYDROCHLOROTHIAZIDE) 0.5 [Suspect]
     Indication: HYPERTENSION
     Dosage: 0.5 QD
     Dates: start: 20041001, end: 20041101
  4. LEVOTHYROXINE SODIUM [Concomitant]
  5. DITEC (FENOTEROL HYDROBROMIDE, CROMOGLICIC ACID) [Concomitant]

REACTIONS (7)
  - ABDOMINAL PAIN UPPER [None]
  - ANGIONEUROTIC OEDEMA [None]
  - ASTHMA [None]
  - BRONCHITIS [None]
  - DRY MOUTH [None]
  - DYSPNOEA [None]
  - THROAT IRRITATION [None]
